FAERS Safety Report 16872857 (Version 1)
Quarter: 2019Q4

REPORT INFORMATION
  Report Type: Spontaneous
  Country: US (occurrence: US)
  Receive Date: 20191001
  Receipt Date: 20191001
  Transmission Date: 20200122
  Serious: Yes (Other)
  Sender: FDA-Public Use
  Company Number: None

PATIENT
  Age: 21 Year
  Sex: Female
  Weight: 91.89 kg

DRUGS (1)
  1. APLISOL [Suspect]
     Active Substance: TUBERCULIN PURIFIED PROTEIN DERIVATIVE
     Dosage: ?          OTHER FREQUENCY:1 TIME;?
     Route: 023

REACTIONS (3)
  - Syncope [None]
  - Tonic clonic movements [None]
  - Vomiting [None]

NARRATIVE: CASE EVENT DATE: 20191001
